FAERS Safety Report 16647834 (Version 4)
Quarter: 2020Q2

REPORT INFORMATION
  Report Type: Spontaneous
  Country: JP (occurrence: JP)
  Receive Date: 20190730
  Receipt Date: 20200529
  Transmission Date: 20200713
  Serious: Yes (Hospitalization, Other)
  Sender: FDA-Public Use
  Company Number: JP-INCYTE CORPORATION-2019IN007608

PATIENT

DRUGS (2)
  1. JAKAVI [Suspect]
     Active Substance: RUXOLITINIB
     Indication: MYELOFIBROSIS
     Dosage: 10 MG
     Route: 048
     Dates: start: 201711
  2. JAKAVI [Suspect]
     Active Substance: RUXOLITINIB
     Dosage: DOSE REDUCED
     Route: 048
     Dates: end: 201908

REACTIONS (6)
  - Progressive multifocal leukoencephalopathy [Not Recovered/Not Resolved]
  - Hemiataxia [Unknown]
  - Dyslalia [Unknown]
  - Dizziness [Unknown]
  - Hemiparesis [Unknown]
  - Tremor [Unknown]

NARRATIVE: CASE EVENT DATE: 20190722
